FAERS Safety Report 12718353 (Version 2)
Quarter: 2016Q3

REPORT INFORMATION
  Report Type: Report from Study
  Country: NL (occurrence: NL)
  Receive Date: 20160906
  Receipt Date: 20160908
  Transmission Date: 20161109
  Serious: Yes (Death)
  Sender: FDA-Public Use
  Company Number: NL-ABBVIE-16P-114-1719478-00

PATIENT
  Age: 84 Year
  Sex: Male

DRUGS (1)
  1. LUCRIN DEPOT [Suspect]
     Active Substance: LEUPROLIDE ACETATE
     Indication: PROSTATE CANCER
     Route: 050
     Dates: start: 20160729, end: 20160729

REACTIONS (3)
  - Hyponatraemia [Fatal]
  - Pneumonia [Fatal]
  - Sense of oppression [Fatal]

NARRATIVE: CASE EVENT DATE: 20160822
